FAERS Safety Report 4538275-0 (Version None)
Quarter: 2004Q4

REPORT INFORMATION
  Report Type: 
  Country: None (occurrence: None)
  Receive Date: 20041221
  Receipt Date: 20041208
  Transmission Date: 20050328
  Serious: Yes (Other)
  Sender: FDA-Public Use
  Company Number: 2004106960

PATIENT
  Age: 54 Year
  Sex: Female
  Weight: 52.1637 kg

DRUGS (6)
  1. CELEBREX [Suspect]
     Indication: ARTHRITIS
     Dosage: 200 MG (200 MG, 1 IN 1 D), ORAL
     Route: 048
     Dates: start: 20000101
  2. CELEBREX [Suspect]
     Indication: OSTEOARTHRITIS
     Dosage: 200 MG (200 MG, 1 IN 1 D), ORAL
     Route: 048
     Dates: start: 20000101
  3. RISEDRONATE SODIUM (RISEDRONATE SODIUM) [Concomitant]
  4. FUROSEMIDE [Concomitant]
  5. ATENOLOL [Concomitant]
  6. CALCIUM (CALCIUM) [Concomitant]

REACTIONS (10)
  - ARTHRALGIA [None]
  - BACK INJURY [None]
  - CARDIOMEGALY [None]
  - ERYTHEMA [None]
  - FOOT FRACTURE [None]
  - MOVEMENT DISORDER [None]
  - OEDEMA PERIPHERAL [None]
  - PAIN IN EXTREMITY [None]
  - REFLEX SYMPATHETIC DYSTROPHY [None]
  - TREATMENT NONCOMPLIANCE [None]
